FAERS Safety Report 24312875 (Version 1)
Quarter: 2024Q3

REPORT INFORMATION
  Report Type: Spontaneous
  Country: US (occurrence: None)
  Receive Date: 20240911
  Receipt Date: 20240911
  Transmission Date: 20241016
  Serious: Yes (Hospitalization, Other)
  Sender: Public
  Company Number: None

PATIENT
  Age: 70 Year
  Sex: Female
  Weight: 107.55 kg

DRUGS (2)
  1. TEPEZZA [Suspect]
     Active Substance: TEPROTUMUMAB-TRBW
     Indication: Endocrine ophthalmopathy
     Dosage: OTHER STRENGTH : UNKNOWN;?OTHER QUANTITY : 3 INJECTION(S);?OTHER FREQUENCY : ONCE EVERY 3 WKS;?
     Route: 042
  2. High blood pressure medication [Concomitant]

REACTIONS (9)
  - Hypoaesthesia [None]
  - Monoplegia [None]
  - Pain in extremity [None]
  - Confusional state [None]
  - Nausea [None]
  - Diarrhoea [None]
  - Fatigue [None]
  - Vaginal haemorrhage [None]
  - Skin odour abnormal [None]

NARRATIVE: CASE EVENT DATE: 20240831
